FAERS Safety Report 9405668 (Version 1)
Quarter: 2013Q3

REPORT INFORMATION
  Report Type: Spontaneous
  Country: ZA (occurrence: ZA)
  Receive Date: 20130717
  Receipt Date: 20130717
  Transmission Date: 20140515
  Serious: Yes (Death)
  Sender: FDA-Public Use
  Company Number: ZA-PFIZER INC-2013205881

PATIENT
  Age: 49 Year
  Sex: Female

DRUGS (2)
  1. VFEND [Suspect]
     Dosage: UNK
  2. CANCIDAS [Suspect]
     Dosage: UNK

REACTIONS (1)
  - Cerebrovascular accident [Fatal]
